FAERS Safety Report 9321441 (Version 1)
Quarter: 2013Q2

REPORT INFORMATION
  Report Type: Spontaneous
  Country: IT (occurrence: IT)
  Receive Date: 20130531
  Receipt Date: 20130531
  Transmission Date: 20140414
  Serious: Yes (Other)
  Sender: FDA-Public Use
  Company Number: IT-PFIZER INC-2013102901

PATIENT
  Age: 67 Year
  Sex: Female

DRUGS (1)
  1. CISPLATINO TEVA [Suspect]
     Indication: NEUROENDOCRINE CARCINOMA
     Dosage: 45 MG, CYCLIC
     Route: 042
     Dates: start: 20130219, end: 20130326

REACTIONS (4)
  - Choking sensation [Recovered/Resolved]
  - Dysphagia [Recovered/Resolved]
  - Dry mouth [Recovered/Resolved]
  - Band sensation [Recovered/Resolved]
